FAERS Safety Report 24283367 (Version 5)
Quarter: 2024Q4

REPORT INFORMATION
  Report Type: Spontaneous
  Country: US (occurrence: US)
  Receive Date: 20240904
  Receipt Date: 20241005
  Transmission Date: 20250115
  Serious: Yes (Other)
  Sender: ROCHE
  Company Number: US-ROCHE-10000070748

PATIENT
  Age: 81 Year
  Sex: Male

DRUGS (1)
  1. VABYSMO [Suspect]
     Active Substance: FARICIMAB-SVOA
     Indication: Neovascular age-related macular degeneration
     Route: 050
     Dates: start: 20230911, end: 20240819

REACTIONS (2)
  - Endophthalmitis [Unknown]
  - Vitritis [Unknown]

NARRATIVE: CASE EVENT DATE: 20240822
